FAERS Safety Report 21657946 (Version 1)
Quarter: 2022Q4

REPORT INFORMATION
  Report Type: Spontaneous
  Country: US (occurrence: US)
  Receive Date: 20221129
  Receipt Date: 20221129
  Transmission Date: 20230113
  Serious: Yes (Other)
  Sender: FDA-Public Use
  Company Number: US-JNJFOC-20221143097

PATIENT
  Age: 59 Year
  Sex: Female
  Weight: 72.640 kg

DRUGS (1)
  1. TOPAMAX [Suspect]
     Active Substance: TOPIRAMATE
     Indication: Generalised tonic-clonic seizure
     Route: 048
     Dates: start: 2001

REACTIONS (6)
  - Generalised tonic-clonic seizure [Unknown]
  - Stress [Unknown]
  - Insomnia [Unknown]
  - Pyrexia [Unknown]
  - Food poisoning [Unknown]
  - Fall [Unknown]

NARRATIVE: CASE EVENT DATE: 20220901
